FAERS Safety Report 10427984 (Version 1)
Quarter: 2014Q3

REPORT INFORMATION
  Report Type: Spontaneous
  Country: US (occurrence: US)
  Receive Date: 20140903
  Receipt Date: 20140903
  Transmission Date: 20150326
  Serious: Yes (Other)
  Sender: FDA-Public Use
  Company Number: US-PFIZER INC-2014235727

PATIENT
  Sex: Male

DRUGS (1)
  1. PREPARATION H NOS [Suspect]
     Active Substance: COCOA BUTTER\PETROLATUM\PHENYLEPHRINE HYDROCHLORIDE\PHENYLEPHRINE HYDROCHLORIDE OR MINERAL OIL
     Dosage: UNK

REACTIONS (7)
  - Skin discolouration [Unknown]
  - Pruritus genital [Unknown]
  - Drug ineffective [Unknown]
  - Penile swelling [Unknown]
  - Penile abscess [Unknown]
  - Intentional product misuse [Unknown]
  - Genital injury [Unknown]

NARRATIVE: CASE EVENT DATE: 201408
